FAERS Safety Report 6491235-5 (Version None)
Quarter: 2009Q4

REPORT INFORMATION
  Report Type: 
  Country: None (occurrence: None)
  Receive Date: 20091211
  Receipt Date: 20091201
  Transmission Date: 20100525
  Serious: Yes (Hospitalization, Other)
  Sender: FDA-Public Use
  Company Number: PHHY2009US53097

PATIENT
  Sex: Female

DRUGS (7)
  1. RECLAST [Suspect]
     Route: 042
  2. ATENOLOL [Concomitant]
  3. LISINOPRIL [Concomitant]
  4. BABY ASPIRIN [Concomitant]
  5. CALCIUM [Concomitant]
  6. VITAMINS [Concomitant]
  7. TYLENOL (CAPLET) [Concomitant]

REACTIONS (3)
  - DEHYDRATION [None]
  - DIARRHOEA [None]
  - DYSPHAGIA [None]
